FAERS Safety Report 5008902-2 (Version None)
Quarter: 2006Q2

REPORT INFORMATION
  Report Type: 
  Country: None (occurrence: None)
  Receive Date: 20060523
  Receipt Date: 20060508
  Transmission Date: 20061013
  Serious: Yes (Death, Hospitalization)
  Sender: FDA-Public Use
  Company Number: US-GLAXOSMITHKLINE-B0423969A

PATIENT
  Age: 28 Year
  Sex: Female

DRUGS (5)
  1. ACYCLOVIR [Suspect]
     Dosage: 10MGK SEE DOSAGE TEXT
     Route: 042
  2. VALACYCLOVIR [Suspect]
     Dosage: 1G THREE TIMES PER DAY
     Route: 048
  3. AMITRIPTYLINE HCL [Concomitant]
     Route: 065
  4. ALBUTEROL SULFATE AUTOHALER [Concomitant]
     Route: 065
  5. METHYLPREDNISOLONE [Concomitant]
     Route: 042

REACTIONS (9)
  - CANDIDIASIS [None]
  - ENTEROCOCCAL INFECTION [None]
  - HERPES VIRUS INFECTION [None]
  - INTERNATIONAL NORMALISED RATIO INCREASED [None]
  - MULTI-ORGAN FAILURE [None]
  - RESPIRATORY DISTRESS [None]
  - SEPSIS [None]
  - THROMBOCYTOPENIA [None]
  - UPPER GASTROINTESTINAL HAEMORRHAGE [None]
